FAERS Safety Report 7477094-2 (Version None)
Quarter: 2011Q2

REPORT INFORMATION
  Report Type: 
  Country: None (occurrence: None)
  Receive Date: 20110512
  Receipt Date: 20110509
  Transmission Date: 20111010
  Serious: Yes (Death)
  Sender: FDA-Public Use
  Company Number: US-CELGENEUS-163-21880-11030228

PATIENT
  Sex: Male

DRUGS (15)
  1. REVLIMID [Suspect]
     Dosage: 5 MILLIGRAM
     Route: 048
     Dates: start: 20110101, end: 20110201
  2. COUMADIN [Concomitant]
     Route: 065
  3. REVLIMID [Suspect]
     Indication: MULTIPLE MYELOMA
     Dosage: 10 MILLIGRAM
     Route: 048
     Dates: start: 20101115
  4. ASPIRIN [Concomitant]
     Route: 065
  5. VITAMIN C [Concomitant]
     Route: 065
  6. VITAMIN B COMPLEX CAP [Concomitant]
     Route: 065
  7. UROXATRAL [Concomitant]
     Route: 065
  8. LISINOPRIL [Concomitant]
     Route: 065
  9. COREG [Concomitant]
     Route: 065
  10. FOLIC ACID [Concomitant]
     Route: 065
  11. NIACIN [Concomitant]
     Route: 065
  12. LASIX [Concomitant]
     Route: 065
  13. HYDROCHLOROTHIAZIDE AND TRIAMTERENE [Concomitant]
     Route: 065
  14. ASTELIN [Concomitant]
     Route: 065
  15. DECADRON [Concomitant]
     Dosage: 10 MILLIGRAM
     Route: 065
     Dates: start: 20101115

REACTIONS (1)
  - MULTIPLE MYELOMA [None]
